FAERS Safety Report 7437958-2 (Version None)
Quarter: 2011Q2

REPORT INFORMATION
  Report Type: 
  Country: None (occurrence: None)
  Receive Date: 20110426
  Receipt Date: 20110414
  Transmission Date: 20111010
  Serious: Yes (Other)
  Sender: FDA-Public Use
  Company Number: GB-SANOFI-AVENTIS-2011SA023058

PATIENT
  Age: 74 Year
  Sex: Female

DRUGS (5)
  1. FASLODEX [Concomitant]
  2. BONDRONAT [Concomitant]
  3. AMIODARONE [Concomitant]
     Route: 065
  4. MULTAQ [Suspect]
     Route: 048
     Dates: start: 20100901
  5. ANALGESICS [Concomitant]

REACTIONS (4)
  - VISUAL IMPAIRMENT [None]
  - OPTIC NEURITIS [None]
  - CONDITION AGGRAVATED [None]
  - VISUAL FIELD DEFECT [None]
